FAERS Safety Report 5406503-5 (Version None)
Quarter: 2007Q3

REPORT INFORMATION
  Report Type: 
  Country: None (occurrence: None)
  Receive Date: 20070806
  Receipt Date: 20070730
  Transmission Date: 20080115
  Serious: Yes (Other)
  Sender: FDA-Public Use
  Company Number: US-PFIZER INC-2007044331

PATIENT
  Age: 16 Year
  Sex: Male

DRUGS (1)
  1. GEODON [Suspect]

REACTIONS (4)
  - ARTHRALGIA [None]
  - DEEP VEIN THROMBOSIS [None]
  - MYALGIA [None]
  - SCIATICA [None]
